FAERS Safety Report 14495185 (Version 12)
Quarter: 2020Q1

REPORT INFORMATION
  Report Type: Spontaneous
  Country: US (occurrence: US)
  Receive Date: 20180206
  Receipt Date: 20200324
  Transmission Date: 20200409
  Serious: No
  Sender: FDA-Public Use
  Company Number: US-ACTELION-A-NJ2018-167200

PATIENT
  Age: 37 Year
  Sex: Female
  Weight: 63.49 kg

DRUGS (2)
  1. TRACLEER [Suspect]
     Active Substance: BOSENTAN
     Indication: PULMONARY HYPERTENSION
     Dosage: 62.5 MG, BID
     Route: 048
  2. ADCIRCA [Concomitant]
     Active Substance: TADALAFIL

REACTIONS (24)
  - Kidney infection [Unknown]
  - Cystitis [Unknown]
  - Streptococcal infection [Unknown]
  - Feeling abnormal [Unknown]
  - Dyspnoea exertional [Unknown]
  - Urinary tract infection [Unknown]
  - Heart rate increased [Unknown]
  - Chest pain [Unknown]
  - Nasopharyngitis [Unknown]
  - Product dose omission [Unknown]
  - Anxiety [Unknown]
  - Rhinorrhoea [Unknown]
  - Sleep apnoea syndrome [Unknown]
  - Depression [Unknown]
  - Respiratory tract irritation [Unknown]
  - Oropharyngeal pain [Unknown]
  - Diarrhoea [Unknown]
  - Cough [Unknown]
  - Fatigue [Unknown]
  - Insomnia [Unknown]
  - Gastroenteritis viral [Unknown]
  - Catheterisation cardiac [Unknown]
  - Bronchitis [Unknown]
  - Malaise [Unknown]

NARRATIVE: CASE EVENT DATE: 20180627
